FAERS Safety Report 20443564 (Version 1)
Quarter: 2022Q1

REPORT INFORMATION
  Report Type: Spontaneous
  Country: US (occurrence: None)
  Receive Date: 20220208
  Receipt Date: 20220208
  Transmission Date: 20220424
  Serious: Yes (Hospitalization)
  Sender: FDA-Public Use
  Company Number: None

PATIENT
  Age: 18 Year
  Sex: Female
  Weight: 66.3 kg

DRUGS (10)
  1. CYCLOPHOSPHAMIDE [Suspect]
     Active Substance: CYCLOPHOSPHAMIDE
     Dates: end: 20220111
  2. CYTARABINE [Suspect]
     Active Substance: CYTARABINE
  3. MERCAPTOPURINE [Suspect]
     Active Substance: MERCAPTOPURINE
     Dates: end: 20220124
  4. METHOTREXATE [Suspect]
     Active Substance: METHOTREXATE
     Dates: end: 20220201
  5. ONCASPAR [Suspect]
     Active Substance: PEGASPARGASE
     Dosage: OTHER QUANTITY : 4275 IU;?
     Dates: end: 20220125
  6. VINCRISTINE SULFATE [Suspect]
     Active Substance: VINCRISTINE SULFATE
     Dates: end: 20220201
  7. AMITRIPTYLINE [Concomitant]
     Active Substance: AMITRIPTYLINE
  8. ESCITALOPRAM [Concomitant]
     Active Substance: ESCITALOPRAM OXALATE
  9. PENTAMIDINE [Concomitant]
     Active Substance: PENTAMIDINE
  10. SCOPOLAMINE [Concomitant]
     Active Substance: SCOPOLAMINE

REACTIONS (6)
  - Sinus tachycardia [None]
  - Sepsis [None]
  - SARS-CoV-2 test positive [None]
  - Tachypnoea [None]
  - Shock [None]
  - Enterocolitis [None]

NARRATIVE: CASE EVENT DATE: 20220204
